FAERS Safety Report 8428685-3 (Version None)
Quarter: 2012Q2

REPORT INFORMATION
  Report Type: 
  Country: None (occurrence: None)
  Receive Date: 20120612
  Receipt Date: 20120530
  Transmission Date: 20120825
  Serious: Yes (Other)
  Sender: FDA-Public Use
  Company Number: BR-ACCORD-013669

PATIENT
  Age: 60 Year
  Sex: Female
  Weight: 95.5 kg

DRUGS (13)
  1. CARBOPLATIN [Concomitant]
     Indication: CHEMOTHERAPY
     Route: 042
     Dates: start: 20120430, end: 20120430
  2. DIPHENHYDRAMINE HCL [Concomitant]
     Indication: PREMEDICATION
     Route: 042
     Dates: start: 20120430, end: 20120430
  3. DEXAMETHASONE [Concomitant]
     Indication: PREMEDICATION
     Route: 042
     Dates: start: 20120430, end: 20120430
  4. HYDROCORTISONE [Concomitant]
     Route: 042
  5. LOSARTAN [Concomitant]
     Indication: HYPERTENSION
     Dosage: 50MG 12/12H
     Route: 048
     Dates: start: 20120420, end: 20120520
  6. GLYBURIDE [Concomitant]
     Route: 048
     Dates: start: 20120420, end: 20120420
  7. METFORMIN HCL [Concomitant]
     Dosage: 850MG 12/12H
     Route: 048
     Dates: start: 20120420, end: 20120420
  8. PACLITAXEL [Suspect]
     Indication: ENDOMETRIAL CANCER
     Route: 042
     Dates: start: 20120430, end: 20120430
  9. HIDROCLOROTIAZIDE [Concomitant]
     Indication: HYPERTENSION
     Route: 048
     Dates: start: 20120420, end: 20120520
  10. RANITIDINE [Concomitant]
     Indication: PREMEDICATION
     Route: 042
     Dates: start: 20120430, end: 20120430
  11. DEXAMETHASONE [Concomitant]
     Indication: CHEMOTHERAPY
     Dosage: 8MG 8/8H
     Route: 048
     Dates: start: 20120429, end: 20120430
  12. ONDANSETRON [Concomitant]
     Indication: PREMEDICATION
     Route: 042
     Dates: start: 20120430, end: 20120430
  13. AMLODIPINE [Concomitant]
     Indication: HYPERTENSION
     Route: 048
     Dates: start: 20120420, end: 20120520

REACTIONS (5)
  - FLUSHING [None]
  - BACK PAIN [None]
  - OFF LABEL USE [None]
  - THROAT IRRITATION [None]
  - CHEST PAIN [None]
